FAERS Safety Report 5999744 (Version 3)
Quarter: 2013Q1

REPORT INFORMATION
  Report Type: Spontaneous
  Country: MX (occurrence: MX)
  Receive Date: 20060307
  Receipt Date: 20130328
  Transmission Date: 20140127
  Serious: Yes (Hospitalization)
  Sender: FDA-Public Use
  Company Number: MX-GLAXOSMITHKLINE-A0595794A

PATIENT
  Age: 21 Year
  Sex: Female

DRUGS (2)
  1. ZOFRAN [Suspect]
     Indication: PROPHYLAXIS OF NAUSEA AND VOMITING
     Route: 042
     Dates: start: 20060203, end: 20060203
  2. VINCRISTINE [Concomitant]
     Indication: CHEMOTHERAPY
     Route: 042

REACTIONS (4)
  - Rash erythematous [Recovered/Resolved]
  - Pruritus [Unknown]
  - Burning sensation [Unknown]
  - Rash papular [Unknown]
